FAERS Safety Report 21512731 (Version 12)
Quarter: 2023Q4

REPORT INFORMATION
  Report Type: Spontaneous
  Country: CA (occurrence: CA)
  Receive Date: 20221027
  Receipt Date: 20231202
  Transmission Date: 20240110
  Serious: Yes (Other)
  Sender: FDA-Public Use
  Company Number: CA-CELLTRION INC.-2022CA009303

PATIENT

DRUGS (11)
  1. INFLECTRA [Suspect]
     Active Substance: INFLIXIMAB-DYYB
     Indication: Rheumatoid arthritis
     Dosage: 900 MG, INDUCTION DOSES AT WEEK 0, 2 AND 6, THEN EVERY 6 WEEKS
     Route: 042
     Dates: start: 20220525
  2. INFLECTRA [Suspect]
     Active Substance: INFLIXIMAB-DYYB
     Dosage: 900 MG, INDUCTION DOSES AT WEEK 0, 2 AND 6, THEN EVERY 6 WEEKS
     Route: 042
     Dates: start: 20220609
  3. INFLECTRA [Suspect]
     Active Substance: INFLIXIMAB-DYYB
     Dosage: 900 MG, INDUCTION DOSES AT WEEK 0, 2 AND 6, THEN EVERY 6 WEEKS
     Route: 042
     Dates: start: 20220817
  4. INFLECTRA [Suspect]
     Active Substance: INFLIXIMAB-DYYB
     Dosage: 900 MG, INDUCTION DOSES AT WEEK 0, 2 AND 6, THEN EVERY 6 WEEKS
     Route: 042
     Dates: start: 20220928
  5. INFLECTRA [Suspect]
     Active Substance: INFLIXIMAB-DYYB
     Dosage: 900MG (10 MG/KG), EVERY 5 WEEKS
     Route: 042
     Dates: start: 20221115
  6. INFLECTRA [Suspect]
     Active Substance: INFLIXIMAB-DYYB
     Dosage: 900 MG (10 MG/KG), EVERY 5 WEEKS
     Route: 042
     Dates: start: 20230104
  7. INFLECTRA [Suspect]
     Active Substance: INFLIXIMAB-DYYB
     Dosage: 900 MG, EVERY 5 WEEKS
     Route: 042
     Dates: start: 20230208
  8. INFLECTRA [Suspect]
     Active Substance: INFLIXIMAB-DYYB
     Dosage: 900 MG, EVERY 5 WEEKS
     Route: 042
     Dates: start: 20230906
  9. INFLECTRA [Suspect]
     Active Substance: INFLIXIMAB-DYYB
     Dosage: 900 MG, EVERY 5 WEEKS
     Route: 042
     Dates: start: 20231011
  10. INFLECTRA [Suspect]
     Active Substance: INFLIXIMAB-DYYB
     Dosage: 900 MG, EVERY 5 WEEKS
     Route: 042
     Dates: start: 20231115, end: 20231115
  11. METHOTREXATE SODIUM [Concomitant]
     Active Substance: METHOTREXATE SODIUM
     Indication: Arthritis
     Dosage: 20 MG, WEEKLY
     Route: 065
     Dates: start: 202011

REACTIONS (13)
  - Knee operation [Recovered/Resolved]
  - Drug ineffective [Unknown]
  - Therapeutic response shortened [Unknown]
  - Vaginal infection [Recovered/Resolved]
  - Menstrual disorder [Unknown]
  - Contusion [Unknown]
  - COVID-19 [Not Recovered/Not Resolved]
  - COVID-19 [Recovered/Resolved]
  - Off label use [Unknown]
  - Off label use [Unknown]
  - Off label use [Unknown]
  - Intentional product use issue [Unknown]
  - Inappropriate schedule of product administration [Unknown]

NARRATIVE: CASE EVENT DATE: 20220101
